FAERS Safety Report 13024503 (Version 1)
Quarter: 2016Q4

REPORT INFORMATION
  Report Type: Report from Study
  Country: US (occurrence: US)
  Receive Date: 20161213
  Receipt Date: 20161213
  Transmission Date: 20170207
  Serious: Yes (Death, Other)
  Sender: FDA-Public Use
  Company Number: US-ACTELION-A-US2016-146663

PATIENT
  Age: 73 Year
  Sex: Female

DRUGS (7)
  1. OPSUMIT [Suspect]
     Active Substance: MACITENTAN
     Indication: PULMONARY ARTERIAL HYPERTENSION
     Dosage: 10 MG, QD
     Route: 048
     Dates: start: 20160715
  2. FUROSEMIDE. [Concomitant]
     Active Substance: FUROSEMIDE
  3. ALPRAZOLAM. [Concomitant]
     Active Substance: ALPRAZOLAM
  4. APAP W/CODEINE [Concomitant]
     Active Substance: ACETAMINOPHEN\CODEINE PHOSPHATE
  5. ELIQUIS [Concomitant]
     Active Substance: APIXABAN
  6. POTASSIUM [Concomitant]
     Active Substance: POTASSIUM
  7. DIGOXIN. [Concomitant]
     Active Substance: DIGOXIN

REACTIONS (2)
  - Vascular graft [Unknown]
  - Cardiac infection [Fatal]

NARRATIVE: CASE EVENT DATE: 20161130
